FAERS Safety Report 8460151-1 (Version None)
Quarter: 2012Q2

REPORT INFORMATION
  Report Type: 
  Country: None (occurrence: None)
  Receive Date: 20120622
  Receipt Date: 20120613
  Transmission Date: 20120825
  Serious: Yes (Hospitalization)
  Sender: FDA-Public Use
  Company Number: SE-BRISTOL-MYERS SQUIBB COMPANY-16683195

PATIENT
  Age: 26 Year
  Sex: Female

DRUGS (2)
  1. ORENCIA [Suspect]
     Indication: RHEUMATOID ARTHRITIS
     Dosage: 250 MG POWDER FOR CONCENTRATE OF SOLUTION FOR INFUSION
     Route: 042
     Dates: start: 20090315
  2. METHOTREXATE [Concomitant]

REACTIONS (1)
  - VENOUS THROMBOSIS LIMB [None]
